FAERS Safety Report 8430626-X (Version None)
Quarter: 2012Q2

REPORT INFORMATION
  Report Type: 
  Country: None (occurrence: None)
  Receive Date: 20120323
  Receipt Date: 20110630
  Transmission Date: 20120825
  Serious: Yes (Other)
  Sender: FDA-Public Use
  Company Number: 163-21880-11042856

PATIENT
  Age: 73 Year
  Sex: Female
  Weight: 81.6475 kg

DRUGS (3)
  1. REVLIMID [Suspect]
     Dosage: 10 MG, DAILY FOR 21 DAYS, PO
     Route: 048
     Dates: start: 20110412, end: 20110503
  2. VICODIN [Concomitant]
  3. ATENOLOL [Concomitant]

REACTIONS (7)
  - PRURITUS [None]
  - PLATELET COUNT DECREASED [None]
  - HAEMOGLOBIN DECREASED [None]
  - MUSCLE SPASMS [None]
  - DRY SKIN [None]
  - FATIGUE [None]
  - BACK PAIN [None]
